FAERS Safety Report 4693410-9 (Version None)
Quarter: 2005Q2

REPORT INFORMATION
  Report Type: 
  Country: None (occurrence: None)
  Receive Date: 20050608
  Receipt Date: 20040708
  Transmission Date: 20051028
  Serious: Yes (Other)
  Sender: FDA-Public Use
  Company Number: 373962

PATIENT

DRUGS (2)
  1. ACCUTANE [Suspect]
     Indication: DRUG USE FOR UNKNOWN INDICATION
     Dosage: 40 MG 2 PER DAY
  2. ORTHO TRI-CYCLEN LO (ETHINYL ESTRADIOL/NORGESTIMATE) [Concomitant]

REACTIONS (2)
  - NO ADVERSE EFFECT [None]
  - PREGNANCY [None]
